FAERS Safety Report 21973141 (Version 1)
Quarter: 2023Q1

REPORT INFORMATION
  Report Type: Spontaneous
  Country: RU (occurrence: RU)
  Receive Date: 20230209
  Receipt Date: 20230209
  Transmission Date: 20230417
  Serious: Yes (Hospitalization, Other)
  Sender: FDA-Public Use
  Company Number: RU-PFIZER INC-PV202300024384

PATIENT
  Age: 57 Year
  Sex: Female

DRUGS (1)
  1. LORLATINIB [Suspect]
     Active Substance: LORLATINIB
     Indication: Non-small cell lung cancer
     Dosage: 100 MG, 1X/DAY
     Dates: start: 20221229, end: 20230127

REACTIONS (6)
  - Partial seizures [Recovering/Resolving]
  - Generalised tonic-clonic seizure [Recovering/Resolving]
  - Hallucination, visual [Recovering/Resolving]
  - Slow speech [Recovering/Resolving]
  - Poor quality sleep [Recovering/Resolving]
  - Neoplasm progression [Unknown]

NARRATIVE: CASE EVENT DATE: 20230127
